FAERS Safety Report 23924598 (Version 3)
Quarter: 2024Q2

REPORT INFORMATION
  Report Type: Spontaneous
  Country: US (occurrence: US)
  Receive Date: 20240531
  Receipt Date: 20240606
  Transmission Date: 20240716
  Serious: No
  Sender: FDA-Public Use
  Company Number: US-PFIZER INC-PV202400070857

PATIENT
  Sex: Male

DRUGS (2)
  1. VYNDAMAX [Interacting]
     Active Substance: TAFAMIDIS
     Dosage: 1 DF, DAILY
     Route: 048
  2. CRESTOR [Interacting]
     Active Substance: ROSUVASTATIN CALCIUM
     Dosage: 20 MG, 1X/DAY (AT BEDTIME)
     Route: 048

REACTIONS (1)
  - Labelled drug-drug interaction medication error [Unknown]
